FAERS Safety Report 10528406 (Version 1)
Quarter: 2014Q4

REPORT INFORMATION
  Report Type: Spontaneous
  Country: US (occurrence: None)
  Receive Date: 20141017
  Receipt Date: 20141017
  Transmission Date: 20150528
  Serious: Yes (Life-Threatening)
  Sender: FDA-Public Use
  Company Number: None

PATIENT
  Age: 73 Year
  Sex: Female

DRUGS (1)
  1. HEPARIN [Suspect]
     Active Substance: HEPARIN SODIUM
     Indication: CORONARY ARTERY BYPASS
     Dates: start: 20141003, end: 20141003

REACTIONS (3)
  - Product substitution issue [None]
  - Product quality issue [None]
  - Therapeutic response decreased [None]

NARRATIVE: CASE EVENT DATE: 20141003
